FAERS Safety Report 5604197-7 (Version None)
Quarter: 2008Q1

REPORT INFORMATION
  Report Type: 
  Country: None (occurrence: None)
  Receive Date: 20080128
  Receipt Date: 20080119
  Transmission Date: 20080703
  Serious: Yes (Other)
  Sender: FDA-Public Use
  Company Number: JP-BAYER-200810075BYL

PATIENT
  Age: 4 Year
  Sex: Female

DRUGS (2)
  1. ASPIRIN [Suspect]
     Indication: CEREBRAL INFARCTION
     Route: 048
     Dates: start: 20060412, end: 20060419
  2. RADICUT [Suspect]
     Indication: CEREBRAL INFARCTION
     Route: 042
     Dates: start: 20060411, end: 20060425

REACTIONS (1)
  - HAEMORRHAGIC CEREBRAL INFARCTION [None]
